FAERS Safety Report 11939460 (Version 3)
Quarter: 2016Q1

REPORT INFORMATION
  Report Type: Spontaneous
  Country: JP (occurrence: JP)
  Receive Date: 20160122
  Receipt Date: 20160323
  Transmission Date: 20160526
  Serious: Yes (Life-Threatening, Hospitalization, Other)
  Sender: FDA-Public Use
  Company Number: JP-ELI_LILLY_AND_COMPANY-JP201512004486

PATIENT
  Age: 69 Year
  Sex: Female
  Weight: 42 kg

DRUGS (10)
  1. FENTOS [Concomitant]
     Active Substance: FENTANYL
     Route: 062
  2. MAGLAX [Concomitant]
     Active Substance: MAGNESIUM OXIDE
     Route: 048
  3. CEFTRIAXONE                        /00672202/ [Suspect]
     Active Substance: CEFTRIAXONE
     Indication: C-REACTIVE PROTEIN INCREASED
     Dosage: UNK
     Route: 042
     Dates: start: 20151211, end: 20151211
  4. DECADRON [Concomitant]
     Active Substance: DEXAMETHASONE
     Route: 048
  5. REBAMIPIDE [Concomitant]
     Active Substance: REBAMIPIDE
     Route: 048
  6. GEMZAR [Suspect]
     Active Substance: GEMCITABINE HYDROCHLORIDE
     Indication: OVARIAN EPITHELIAL CANCER
     Dosage: 1200 MG, OTHER
     Route: 042
     Dates: start: 20151116, end: 20151130
  7. ANOLEXINON [Concomitant]
     Route: 048
  8. ABSTRAL [Concomitant]
     Active Substance: FENTANYL CITRATE
     Route: 060
  9. LOXOPROFEN NA [Concomitant]
     Active Substance: LOXOPROFEN SODIUM
     Route: 048
  10. SENNOSIDE                          /00571902/ [Concomitant]
     Active Substance: SENNOSIDES A AND B
     Route: 048

REACTIONS (5)
  - Deep vein thrombosis [Unknown]
  - C-reactive protein increased [Recovered/Resolved]
  - Malaise [Recovered/Resolved]
  - Pulmonary embolism [Recovered/Resolved]
  - Interstitial lung disease [Recovered/Resolved]

NARRATIVE: CASE EVENT DATE: 20151211
